FAERS Safety Report 14507116 (Version 2)
Quarter: 2020Q1

REPORT INFORMATION
  Report Type: Spontaneous
  Country: CA (occurrence: CA)
  Receive Date: 20180208
  Receipt Date: 20200203
  Transmission Date: 20200409
  Serious: Yes (Death, Hospitalization, Other)
  Sender: FDA-Public Use
  Company Number: CA-ALLERGAN-1805870US

PATIENT
  Sex: Male

DRUGS (4)
  1. APO-PREDNISONE [Suspect]
     Active Substance: PREDNISONE
     Indication: STEROID THERAPY
     Dosage: 15 MG, UNK
     Route: 065
  2. MESALAZINE UNK [Suspect]
     Active Substance: MESALAMINE
     Indication: COLITIS
     Dosage: UNK
     Route: 065
  3. APO-AZATHIOPRINE [Suspect]
     Active Substance: AZATHIOPRINE
     Indication: COLITIS
     Dosage: UNK, UNKNOWN
     Route: 065
  4. INFLIXIMAB [Suspect]
     Active Substance: INFLIXIMAB
     Indication: COLITIS
     Dosage: 5 MG/KG, UNK
     Route: 065

REACTIONS (7)
  - Drug ineffective [Fatal]
  - Histoplasmosis [Fatal]
  - Cytomegalovirus colitis [Fatal]
  - Drug dependence [Fatal]
  - Cytomegalovirus viraemia [Fatal]
  - Drug use disorder [Fatal]
  - Haemophagocytic lymphohistiocytosis [Fatal]
